FAERS Safety Report 5196978-1 (Version None)
Quarter: 2006Q4

REPORT INFORMATION
  Report Type: 
  Country: None (occurrence: None)
  Receive Date: 20061227
  Receipt Date: 20061214
  Transmission Date: 20070319
  Serious: Yes (Death, Other)
  Sender: FDA-Public Use
  Company Number: 2006154110

PATIENT
  Age: 55 Year
  Sex: Male

DRUGS (4)
  1. NEURONTIN [Suspect]
     Dosage: 200 MG, ORAL
     Route: 048
     Dates: start: 20060916, end: 20060927
  2. RIFADIN [Suspect]
     Dosage: 1800 MG, ORAL
     Route: 048
     Dates: start: 20060914, end: 20060925
  3. AMOXICILLIN TRIHYDRATE [Suspect]
     Dosage: 500 MG, ORAL
     Route: 048
     Dates: start: 20060915, end: 20060925
  4. PRAVASTATIN [Suspect]
     Dosage: 10 MG, ORAL
     Dates: start: 20060914, end: 20060927

REACTIONS (4)
  - AGRANULOCYTOSIS [None]
  - ANAEMIA [None]
  - CARDIO-RESPIRATORY ARREST [None]
  - FEBRILE NEUTROPENIA [None]
